FAERS Safety Report 7294853-X (Version None)
Quarter: 2011Q1

REPORT INFORMATION
  Report Type: 
  Country: None (occurrence: None)
  Receive Date: 20110216
  Receipt Date: 20110207
  Transmission Date: 20110831
  Serious: Yes (Other)
  Sender: FDA-Public Use
  Company Number: GB-JNJFOC-20101203250

PATIENT
  Sex: Female

DRUGS (5)
  1. RAMIPRIL [Concomitant]
     Indication: HYPERTENSION
     Route: 065
  2. DARUNAVIR [Suspect]
     Indication: HIV INFECTION
     Route: 048
  3. TENOFOVIR [Concomitant]
     Indication: HIV INFECTION
     Route: 065
  4. TENOFOVIR [Concomitant]
     Route: 065
  5. RITONAVIR [Concomitant]
     Indication: HIV INFECTION
     Route: 065

REACTIONS (4)
  - TACHYCARDIA [None]
  - SLEEP DISORDER [None]
  - BREAST ENLARGEMENT [None]
  - WEIGHT INCREASED [None]
